FAERS Safety Report 10356770 (Version 2)
Quarter: 2014Q3

REPORT INFORMATION
  Report Type: Spontaneous
  Country: US (occurrence: US)
  Receive Date: 20140801
  Receipt Date: 20140801
  Transmission Date: 20150326
  Serious: No
  Sender: FDA-Public Use
  Company Number: US-DRREDDYS-USA/USA/13/0036214

PATIENT
  Age: 44 Year
  Sex: Female
  Weight: 80.7 kg

DRUGS (2)
  1. OMEPRAZOLE MAGNESIUM DELAYED RELEASE OTC [Suspect]
     Active Substance: OMEPRAZOLE MAGNESIUM
     Indication: GASTROOESOPHAGEAL REFLUX DISEASE
     Route: 065
     Dates: start: 20131202, end: 20131205
  2. OMEPRAZOLE MAGNESIUM DELAYED RELEASE OTC [Suspect]
     Active Substance: OMEPRAZOLE MAGNESIUM
     Indication: BARRETT^S OESOPHAGUS

REACTIONS (4)
  - Oesophageal mucosa erythema [Recovering/Resolving]
  - Pharyngeal erythema [Recovering/Resolving]
  - Pharyngeal oedema [Not Recovered/Not Resolved]
  - Oesophageal oedema [Recovering/Resolving]

NARRATIVE: CASE EVENT DATE: 20131202
